FAERS Safety Report 22159752 (Version 2)
Quarter: 2024Q1

REPORT INFORMATION
  Report Type: Spontaneous
  Country: US (occurrence: US)
  Receive Date: 20230331
  Receipt Date: 20240116
  Transmission Date: 20240410
  Serious: Yes (Death)
  Sender: FDA-Public Use
  Company Number: US-JNJFOC-20230373454

PATIENT
  Sex: Female

DRUGS (1)
  1. OPSUMIT [Suspect]
     Active Substance: MACITENTAN
     Indication: Product used for unknown indication
     Route: 048
     Dates: start: 20200214

REACTIONS (1)
  - Death [Fatal]
